FAERS Safety Report 11154299 (Version 3)
Quarter: 2017Q2

REPORT INFORMATION
  Report Type: Spontaneous
  Country: US (occurrence: US)
  Receive Date: 20150602
  Receipt Date: 20170602
  Transmission Date: 20170829
  Serious: No
  Sender: FDA-Public Use
  Company Number: US-NOVEN PHARMACEUTICALS, INC.-14US013123

PATIENT

DRUGS (9)
  1. DAYTRANA [Suspect]
     Active Substance: METHYLPHENIDATE
     Dosage: 30 MG, QD
     Route: 062
     Dates: start: 2016
  2. DAYTRANA [Suspect]
     Active Substance: METHYLPHENIDATE
     Dosage: 35 MG (BY APPLYING MULTIPLE PATCHES), UNKNOWN
  3. QUILLIVANT XR [Suspect]
     Active Substance: METHYLPHENIDATE HYDROCHLORIDE
     Indication: AUTISM SPECTRUM DISORDER
     Dosage: 750 MG, QD
     Route: 065
     Dates: start: 2016, end: 20160810
  4. DAYTRANA [Suspect]
     Active Substance: METHYLPHENIDATE
     Dosage: 30 MG, QOD
     Route: 062
     Dates: start: 201608, end: 2016
  5. DAYTRANA [Suspect]
     Active Substance: METHYLPHENIDATE
     Dosage: 30 MG, UNKNOWN
     Route: 062
     Dates: start: 201607, end: 201608
  6. PREDNISONE. [Concomitant]
     Active Substance: PREDNISONE
     Indication: ECZEMA
  7. QUILLIVANT XR [Suspect]
     Active Substance: METHYLPHENIDATE HYDROCHLORIDE
     Indication: ATTENTION DEFICIT/HYPERACTIVITY DISORDER
     Dosage: 600 MG, QD
     Route: 065
     Dates: start: 201604, end: 2016
  8. DAYTRANA [Suspect]
     Active Substance: METHYLPHENIDATE
     Indication: ATTENTION DEFICIT/HYPERACTIVITY DISORDER
     Dosage: 30 MG, DAILY
     Route: 062
     Dates: start: 201001, end: 2016
  9. DAYTRANA [Suspect]
     Active Substance: METHYLPHENIDATE
     Dosage: 35 MG, USING 15 PLUS 20 MG PATCHES AND THEN TWO 10 MG AND ONE 15 PATCH DUE TO UNAVAILABILITY OF 20MG
     Route: 062
     Dates: end: 2016

REACTIONS (17)
  - Psychomotor hyperactivity [Recovered/Resolved]
  - Withdrawal syndrome [Unknown]
  - Product adhesion issue [Recovered/Resolved]
  - Off label use [Unknown]
  - Abnormal behaviour [Unknown]
  - Wrong technique in product usage process [Recovered/Resolved]
  - Prescribed overdose [Recovered/Resolved]
  - Impulsive behaviour [Not Recovered/Not Resolved]
  - Crying [Not Recovered/Not Resolved]
  - Emotional disorder [Recovered/Resolved]
  - Insomnia [Not Recovered/Not Resolved]
  - Drug dose omission [Not Recovered/Not Resolved]
  - Inappropriate affect [Unknown]
  - Product quality issue [Unknown]
  - Confusional state [Not Recovered/Not Resolved]
  - Disturbance in attention [Unknown]
  - Decreased appetite [Not Recovered/Not Resolved]

NARRATIVE: CASE EVENT DATE: 20141210
